FAERS Safety Report 18181120 (Version 2)
Quarter: 2020Q4

REPORT INFORMATION
  Report Type: Report from Study
  Country: BR (occurrence: BR)
  Receive Date: 20200821
  Receipt Date: 20201123
  Transmission Date: 20210113
  Serious: Yes (Other)
  Sender: FDA-Public Use
  Company Number: BR-UCBSA-2020031787

PATIENT
  Age: 45 Year
  Sex: Male
  Weight: 70 kg

DRUGS (7)
  1. AMITRIPTILINA [AMITRIPTYLINE] [Concomitant]
     Active Substance: AMITRIPTYLINE HYDROCHLORIDE
     Indication: DEPRESSION
     Dosage: 0.25 MILLIGRAM, UNK
     Route: 048
     Dates: start: 20180812
  2. DOLAMIN [CLONIXIN LYSINATE] [Concomitant]
     Indication: HEADACHE
     Dosage: 125 MILLIGRAM, 2X/DAY (BID)
     Route: 048
     Dates: start: 20200611
  3. CERTOLIZUMAB PEGOL ASP [Suspect]
     Active Substance: CERTOLIZUMAB PEGOL
     Indication: ANKYLOSING SPONDYLITIS
     Dosage: 400 MILLIGRAM, MONTHLY (QM)
     Route: 058
     Dates: start: 20180813, end: 202005
  4. RIVOTRIL [Concomitant]
     Active Substance: CLONAZEPAM
     Indication: DEPRESSION
     Dosage: 5 MILLIGRAM, UNK
     Route: 048
     Dates: start: 20180812
  5. RIFAMICINA [RIFAMYCIN] [Concomitant]
     Indication: TUBERCULOSIS
     Dosage: UNK
     Route: 048
     Dates: start: 20200616
  6. AZULFIDINE [Concomitant]
     Active Substance: SULFASALAZINE
     Indication: ANKYLOSING SPONDYLITIS
     Dosage: 500 MILLIGRAM, 4X/DAY (QID)
     Route: 048
     Dates: start: 20180812
  7. OXOTRON [Concomitant]
     Dosage: 60 MILLIGRAM, ONCE DAILY (QD)
     Route: 048
     Dates: start: 20200811

REACTIONS (4)
  - Lactose intolerance [Recovering/Resolving]
  - Tuberculosis [Recovering/Resolving]
  - Diabetes mellitus [Recovering/Resolving]
  - Pain [Unknown]

NARRATIVE: CASE EVENT DATE: 202005
